FAERS Safety Report 5643044-4 (Version None)
Quarter: 2008Q1

REPORT INFORMATION
  Report Type: 
  Country: None (occurrence: None)
  Receive Date: 20080228
  Receipt Date: 20080219
  Transmission Date: 20080703
  Serious: Yes (Hospitalization)
  Sender: FDA-Public Use
  Company Number: PHHO2008DE02473

PATIENT
  Age: 33 Year
  Sex: Female
  Weight: 119 kg

DRUGS (3)
  1. NO TREATMENT RECEIVED NOMED [Suspect]
  2. MYFORTIC [Suspect]
     Indication: RENAL TRANSPLANT
     Route: 048
  3. SANDIMMUNE [Suspect]
     Indication: RENAL TRANSPLANT
     Route: 048

REACTIONS (1)
  - HYPERTENSIVE CRISIS [None]
